FAERS Safety Report 7348461-2 (Version None)
Quarter: 2011Q1

REPORT INFORMATION
  Report Type: 
  Country: None (occurrence: None)
  Receive Date: 20110314
  Receipt Date: 20110304
  Transmission Date: 20110831
  Serious: Yes (Other)
  Sender: FDA-Public Use
  Company Number: US-AMGEN-USASP2011011002

PATIENT
  Age: 80 Year
  Weight: 47.483 kg

DRUGS (14)
  1. CALCIUM [Concomitant]
  2. DIOVAN [Concomitant]
     Dosage: 160 MG, QD
  3. NPLATE [Suspect]
     Indication: THROMBOCYTOPENIA
     Dosage: 10 A?G/KG, QWK
     Route: 058
     Dates: start: 20100318, end: 20100826
  4. PREDNISONE [Concomitant]
     Dosage: 20 MG, QD
  5. ATENOLOL [Concomitant]
     Dosage: 100 MG, BID
  6. HUMIRA [Concomitant]
  7. CORTICOSTEROIDS [Concomitant]
  8. DIOVAN HCT [Concomitant]
  9. ENBREL [Concomitant]
  10. PREVACID [Concomitant]
     Dosage: 30 MG, QD
  11. VICODIN [Concomitant]
  12. ACTONEL [Concomitant]
  13. NPLATE [Suspect]
     Indication: IDIOPATHIC THROMBOCYTOPENIC PURPURA
     Dates: start: 20100318, end: 20100826
  14. FLEXERIL [Concomitant]

REACTIONS (3)
  - THERAPEUTIC RESPONSE DECREASED [None]
  - MYELODYSPLASTIC SYNDROME [None]
  - PLATELET COUNT DECREASED [None]
